FAERS Safety Report 6312060-1 (Version None)
Quarter: 2009Q3

REPORT INFORMATION
  Report Type: 
  Country: None (occurrence: None)
  Receive Date: 20090813
  Receipt Date: 20090813
  Transmission Date: 20100115
  Serious: Yes (Life-Threatening)
  Sender: FDA-Public Use
  Company Number: None

PATIENT
  Age: 49 Year
  Sex: Male
  Weight: 115.6672 kg

DRUGS (1)
  1. TAMIFLU [Suspect]
     Indication: VIRAL TEST POSITIVE
     Dosage: 75 MG 2X DAILY PO
     Route: 048
     Dates: start: 20090805, end: 20090810

REACTIONS (3)
  - AGGRESSION [None]
  - ANGER [None]
  - HALLUCINATION [None]
